FAERS Safety Report 6214496-6 (Version None)
Quarter: 2009Q2

REPORT INFORMATION
  Report Type: 
  Country: None (occurrence: None)
  Receive Date: 20090602
  Receipt Date: 20090521
  Transmission Date: 20091009
  Serious: Yes (Hospitalization)
  Sender: FDA-Public Use
  Company Number: 2009-01510

PATIENT
  Age: 61 Year
  Sex: Female
  Weight: 67 kg

DRUGS (1)
  1. VELCADE [Suspect]
     Indication: DRUG USE FOR UNKNOWN INDICATION
     Dosage: 1.8 MG, INTRAVENOUS
     Route: 042
     Dates: start: 20081017, end: 20090413

REACTIONS (2)
  - CATHETER SITE ERYTHEMA [None]
  - CELLULITIS [None]
